FAERS Safety Report 18422425 (Version 1)
Quarter: 2020Q4

REPORT INFORMATION
  Report Type: Report from Study
  Country: IN (occurrence: IN)
  Receive Date: 20201023
  Receipt Date: 20201023
  Transmission Date: 20210114
  Serious: Yes (Other)
  Sender: FDA-Public Use
  Company Number: NVSC2020IN205221

PATIENT
  Age: 62 Year
  Sex: Female

DRUGS (3)
  1. KRYXANA [Suspect]
     Active Substance: RIBOCICLIB
     Dosage: 400 MG, QD
     Route: 048
     Dates: start: 20200612, end: 20200917
  2. KRYXANA [Suspect]
     Active Substance: RIBOCICLIB
     Indication: BONE CANCER METASTATIC
     Dosage: 600 MG,
     Route: 048
     Dates: start: 20200207, end: 20200611
  3. KRYXANA [Suspect]
     Active Substance: RIBOCICLIB
     Dosage: 400 MG, QD
     Route: 048
     Dates: start: 20201011

REACTIONS (2)
  - COVID-19 [Recovered/Resolved]
  - Haemoglobin decreased [Not Recovered/Not Resolved]

NARRATIVE: CASE EVENT DATE: 20200612
